FAERS Safety Report 24763945 (Version 1)
Quarter: 2024Q4

REPORT INFORMATION
  Report Type: Spontaneous
  Country: CN (occurrence: CN)
  Receive Date: 20241223
  Receipt Date: 20241223
  Transmission Date: 20250115
  Serious: Yes (Hospitalization, Other)
  Sender: JOHNSON AND JOHNSON
  Company Number: CN-BAYER-2024A177722

PATIENT
  Age: 75 Year
  Sex: Male
  Weight: 50 kg

DRUGS (1)
  1. XARELTO [Suspect]
     Active Substance: RIVAROXABAN
     Indication: Deep vein thrombosis
     Dosage: 15 MG, QD
     Route: 048
     Dates: start: 20241108, end: 20241129

REACTIONS (8)
  - Coagulopathy [Unknown]
  - Haemothorax [Unknown]
  - Acute kidney injury [Unknown]
  - Ureteric obstruction [Unknown]
  - Ureteric haemorrhage [Unknown]
  - Product prescribing issue [Unknown]
  - Inappropriate schedule of product administration [Unknown]
  - Paranasal sinus haemorrhage [Unknown]

NARRATIVE: CASE EVENT DATE: 20241108
